FAERS Safety Report 22817940 (Version 2)
Quarter: 2023Q4

REPORT INFORMATION
  Report Type: Spontaneous
  Country: JP (occurrence: JP)
  Receive Date: 20230814
  Receipt Date: 20231219
  Transmission Date: 20240110
  Serious: Yes (Other)
  Sender: FDA-Public Use
  Company Number: JP-002147023-NVSJ2023JP012342

PATIENT
  Age: 81 Year
  Sex: Male

DRUGS (3)
  1. BEOVU [Suspect]
     Active Substance: BROLUCIZUMAB-DBLL
     Indication: Age-related macular degeneration
     Dosage: 6 MG
     Route: 031
  2. BEOVU [Suspect]
     Active Substance: BROLUCIZUMAB-DBLL
     Dosage: 6 MG
     Route: 031
  3. BEOVU [Suspect]
     Active Substance: BROLUCIZUMAB-DBLL
     Dosage: 6 MG
     Route: 031

REACTIONS (5)
  - Keratic precipitates [Recovered/Resolved]
  - Eye inflammation [Recovered/Resolved]
  - Vision blurred [Recovered/Resolved]
  - Corneal oedema [Recovered/Resolved]
  - Anterior chamber opacity [Recovered/Resolved]

NARRATIVE: CASE EVENT DATE: 20230710
